FAERS Safety Report 11071893 (Version 2)
Quarter: 2015Q2

REPORT INFORMATION
  Report Type: Spontaneous
  Country: JP (occurrence: None)
  Receive Date: 20150424
  Receipt Date: 20150605
  Transmission Date: 20150821
  Serious: Yes (Other)
  Sender: FDA-Public Use
  Company Number: 2015-11110

PATIENT
  Age: 65 Year
  Sex: Male

DRUGS (2)
  1. ADCHNON (CARBAZOCHROME) [Concomitant]
  2. EYLEA [Suspect]
     Active Substance: AFLIBERCEPT
     Indication: POLYPOIDAL CHOROIDAL VASCULOPATHY
     Route: 031
     Dates: start: 20130528, end: 20130528

REACTIONS (1)
  - Macular hole [None]

NARRATIVE: CASE EVENT DATE: 20130813
